FAERS Safety Report 8505375 (Version 11)
Quarter: 2013Q1

REPORT INFORMATION
  Report Type: Report from Study
  Country: JP (occurrence: JP)
  Receive Date: 20120412
  Receipt Date: 20130206
  Transmission Date: 20140127
  Serious: Yes (Hospitalization)
  Sender: FDA-Public Use
  Company Number: PHHO2012JP004335

PATIENT
  Age: 66 Year
  Sex: Male
  Weight: 70 kg

DRUGS (5)
  1. AIN457 [Suspect]
     Indication: PSORIASIS
     Dosage: 300 MG, QD
     Route: 058
     Dates: start: 20120124, end: 20120131
  2. DIOVAN [Suspect]
     Indication: HYPERTENSION
     Dosage: 40 MG, QD
     Route: 048
     Dates: start: 20111026
  3. TOWARAT [Suspect]
     Indication: HYPERTENSION
     Dosage: 20 MG, QD
     Route: 048
     Dates: start: 20111026, end: 20120406
  4. PROPETO [Concomitant]
     Indication: DRY SKIN
     Dosage: UNK
     Route: 061
     Dates: start: 20111128
  5. ALLEGRA [Concomitant]
     Indication: PRURITUS
     Dosage: 120 MG, UNK
     Route: 048
     Dates: start: 20111213

REACTIONS (1)
  - Pemphigus [Not Recovered/Not Resolved]
